FAERS Safety Report 5710421-2 (Version None)
Quarter: 2008Q2

REPORT INFORMATION
  Report Type: 
  Country: None (occurrence: None)
  Receive Date: 20080418
  Receipt Date: 20080410
  Transmission Date: 20081010
  Serious: Yes (Other)
  Sender: FDA-Public Use
  Company Number: AU-PFIZER INC-2008032430

PATIENT
  Age: 69 Year
  Sex: Female

DRUGS (5)
  1. NORVASC [Suspect]
     Indication: HYPERTENSION
  2. LIPITOR [Suspect]
     Indication: DYSLIPIDAEMIA
  3. CADUET [Suspect]
     Indication: HYPERTENSION
     Dosage: TEXT:5/40
     Route: 048
  4. CADUET [Suspect]
     Indication: DYSLIPIDAEMIA
  5. LEVOTHYROXINE SODIUM [Concomitant]

REACTIONS (2)
  - MYALGIA [None]
  - RENAL FAILURE ACUTE [None]
